FAERS Safety Report 11376530 (Version 1)
Quarter: 2015Q3

REPORT INFORMATION
  Report Type: Spontaneous
  Country: GB (occurrence: GB)
  Receive Date: 20150813
  Receipt Date: 20150813
  Transmission Date: 20151125
  Serious: Yes (Other)
  Sender: FDA-Public Use
  Company Number: GB-ASTRAZENECA-2015SE75944

PATIENT
  Age: 63 Year
  Sex: Female
  Weight: 89 kg

DRUGS (16)
  1. RAMIPRIL. [Concomitant]
     Active Substance: RAMIPRIL
     Dates: start: 20140228
  2. OMEPRAZOLE. [Concomitant]
     Active Substance: OMEPRAZOLE
     Dates: start: 20140925
  3. NOVOMIX [Concomitant]
     Active Substance: INSULIN ASPART
     Dates: start: 20140204
  4. ZAPAIN [Concomitant]
     Active Substance: ACETAMINOPHEN\CODEINE PHOSPHATE
     Dosage: TAKE 1 OR 2, , FOUR TIMES A DAY
     Dates: start: 20150713, end: 20150727
  5. ATORVASTATIN [Concomitant]
     Active Substance: ATORVASTATIN
     Dates: start: 20140228
  6. DICLOFENAC SODIUM. [Concomitant]
     Active Substance: DICLOFENAC SODIUM
     Dates: start: 20150519, end: 20150603
  7. CLOPIDOGREL [Concomitant]
     Active Substance: CLOPIDOGREL BISULFATE
     Dates: start: 20140228
  8. CLOTRIMAZOLE. [Concomitant]
     Active Substance: CLOTRIMAZOLE
     Dates: start: 20150615, end: 20150622
  9. ERYTHROMYCIN. [Concomitant]
     Active Substance: ERYTHROMYCIN
     Dates: start: 20150616, end: 20150623
  10. SALBUTAMOL [Concomitant]
     Active Substance: ALBUTEROL
     Route: 055
     Dates: start: 20140228
  11. VERAPAMIL HYDROCHLORIDE. [Concomitant]
     Active Substance: VERAPAMIL HYDROCHLORIDE
  12. FORXIGA [Suspect]
     Active Substance: DAPAGLIFLOZIN
     Route: 048
     Dates: start: 20150728
  13. CO-AMILOFRUSE [Concomitant]
     Active Substance: AMILORIDE\FUROSEMIDE
     Dates: start: 20140306
  14. METFORMIN [Concomitant]
     Active Substance: METFORMIN HYDROCHLORIDE
     Dosage: 3 DF , DAILY, TAKE 2 WITH BREAKFAST AND 1 EVENING MEAL
     Dates: start: 20140228
  15. AMITRIPTYLINE HYDROCHLORIDE. [Concomitant]
     Active Substance: AMITRIPTYLINE HYDROCHLORIDE
     Dates: start: 20140509
  16. QVAR [Concomitant]
     Active Substance: BECLOMETHASONE DIPROPIONATE
     Route: 055
     Dates: start: 20140903

REACTIONS (1)
  - Haematuria [Recovered/Resolved]

NARRATIVE: CASE EVENT DATE: 20150728
